FAERS Safety Report 25150183 (Version 1)
Quarter: 2025Q2

REPORT INFORMATION
  Report Type: Other
  Country: QA (occurrence: QA)
  Receive Date: 20250402
  Receipt Date: 20250402
  Transmission Date: 20250716
  Serious: Yes (Life-Threatening, Hospitalization, Other)
  Sender: LYNE LABORATORIES
  Company Number: QA-Lyne Laboratories Inc.-2174104

PATIENT
  Age: 59 Year
  Sex: Female

DRUGS (2)
  1. DEXAMETHASONE [Suspect]
     Active Substance: DEXAMETHASONE
     Indication: Product used for unknown indication
  2. PHENYTOIN [Concomitant]
     Active Substance: PHENYTOIN

REACTIONS (1)
  - Diabetic ketoacidosis [Unknown]
